FAERS Safety Report 6900696-6 (Version None)
Quarter: 2010Q3

REPORT INFORMATION
  Report Type: 
  Country: None (occurrence: None)
  Receive Date: 20100730
  Receipt Date: 20100726
  Transmission Date: 20110219
  Serious: Yes (Other)
  Sender: FDA-Public Use
  Company Number: 2010SP012279

PATIENT
  Age: 40 Year
  Sex: Female
  Weight: 64 kg

DRUGS (2)
  1. DESOGESTREL/ETHINYL ESTRADIOL [Suspect]
     Indication: OVARIAN CYST
     Dosage: PO
     Route: 048
     Dates: start: 20100220, end: 20100224
  2. DESOGESTREL/ETHINYL ESTRADIOL [Suspect]
     Indication: OVARIAN CYST
     Dosage: PO
     Route: 048
     Dates: start: 20100310

REACTIONS (7)
  - ABDOMINAL PAIN [None]
  - FATIGUE [None]
  - MIGRAINE [None]
  - NAUSEA [None]
  - OFF LABEL USE [None]
  - PAIN IN EXTREMITY [None]
  - TACHYCARDIA [None]
